FAERS Safety Report 20672330 (Version 1)
Quarter: 2022Q2

REPORT INFORMATION
  Report Type: Spontaneous
  Country: CA (occurrence: CA)
  Receive Date: 20220405
  Receipt Date: 20220405
  Transmission Date: 20220721
  Serious: Yes (Other)
  Sender: FDA-Public Use
  Company Number: CA-TEVA-2022-CA-2023854

PATIENT
  Sex: Male

DRUGS (1)
  1. FINGOLIMOD HYDROCHLORIDE [Suspect]
     Active Substance: FINGOLIMOD HYDROCHLORIDE
     Indication: Product used for unknown indication
     Route: 065

REACTIONS (6)
  - Angina pectoris [Unknown]
  - Cardiac disorder [Unknown]
  - Fatigue [Unknown]
  - Heart rate decreased [Unknown]
  - Heart rate irregular [Unknown]
  - Hypotension [Unknown]
